FAERS Safety Report 4718269-2 (Version None)
Quarter: 2005Q3

REPORT INFORMATION
  Report Type: 
  Country: None (occurrence: None)
  Receive Date: 20050720
  Receipt Date: 20050718
  Transmission Date: 20060218
  Serious: Yes (Other)
  Sender: FDA-Public Use
  Company Number: PHFR2005GB02497

PATIENT

DRUGS (1)
  1. RITALIN [Suspect]

REACTIONS (1)
  - CARDIAC DISORDER [None]
